FAERS Safety Report 8105386-2 (Version None)
Quarter: 2012Q1

REPORT INFORMATION
  Report Type: 
  Country: None (occurrence: None)
  Receive Date: 20120201
  Receipt Date: 20120118
  Transmission Date: 20120608
  Serious: Yes (Hospitalization)
  Sender: FDA-Public Use
  Company Number: IE-MEDIMMUNE-MEDI-0014668

PATIENT
  Sex: Female

DRUGS (6)
  1. FERROUS SULFATE TAB [Concomitant]
  2. RANITIDINE HCL [Concomitant]
  3. FUROSEMIDE SODIUM [Concomitant]
  4. CAPTIPRIL [Concomitant]
  5. SYNAGIS [Suspect]
     Indication: HEART DISEASE CONGENITAL
     Route: 042
     Dates: start: 20111014, end: 20111014
  6. SILDENAFIL [Concomitant]

REACTIONS (1)
  - GASTROOESOPHAGEAL REFLUX DISEASE [None]
